FAERS Safety Report 7295442-3 (Version None)
Quarter: 2011Q1

REPORT INFORMATION
  Report Type: 
  Country: None (occurrence: None)
  Receive Date: 20110211
  Receipt Date: 20110211
  Transmission Date: 20110831
  Serious: Yes (Hospitalization, Disabling, Other)
  Sender: FDA-Public Use
  Company Number: None

PATIENT
  Age: 53 Year
  Sex: Male
  Weight: 90 kg

DRUGS (18)
  1. CARVEDILOL [Concomitant]
  2. OXACILLIN [Concomitant]
  3. CIPROFLOXACIN [Concomitant]
  4. PRADAXA [Suspect]
     Indication: ATRIAL FIBRILLATION
     Dosage: 150MG BID PO
     Route: 048
     Dates: start: 20101125, end: 20101206
  5. LISINOPRIL [Concomitant]
  6. NIASPAN [Concomitant]
  7. FUROSEMIDE [Concomitant]
  8. VANCOMYCIN [Concomitant]
  9. METOPROLOL SUCCINATE EXTENDED RELEASE [Concomitant]
  10. ROSUVASTATIN [Concomitant]
  11. PHOSPHATE BINDER [Concomitant]
  12. ARANESP [Concomitant]
  13. CEFAZOLIN [Concomitant]
  14. FISH OIL [Concomitant]
  15. DIGOXIN [Concomitant]
  16. DAPTOMYCIN [Concomitant]
  17. COUMADIN [Concomitant]
  18. OXYCODONE [Concomitant]

REACTIONS (7)
  - HAEMODIALYSIS [None]
  - TUBULOINTERSTITIAL NEPHRITIS [None]
  - HAEMORRHAGE [None]
  - RENAL FAILURE ACUTE [None]
  - EPISTAXIS [None]
  - HAEMATURIA [None]
  - WOUND SECRETION [None]
